FAERS Safety Report 16144304 (Version 1)
Quarter: 2019Q1

REPORT INFORMATION
  Report Type: Spontaneous
  Country: US (occurrence: US)
  Receive Date: 20190226
  Receipt Date: 20190226
  Transmission Date: 20190418
  Serious: Yes (Disabling, Other)
  Sender: FDA-Public Use
  Company Number: None

PATIENT
  Age: 62 Year
  Sex: Female
  Weight: 74.84 kg

DRUGS (7)
  1. VENTOLIN [Concomitant]
     Active Substance: ALBUTEROL SULFATE
  2. LOSARTAN. [Concomitant]
     Active Substance: LOSARTAN
  3. TAXOL [Suspect]
     Active Substance: PACLITAXEL
     Indication: BREAST CANCER
     Route: 042
     Dates: start: 20100103, end: 20100528
  4. LEVOTHYROXINE. [Concomitant]
     Active Substance: LEVOTHYROXINE
  5. SYMBICORT [Concomitant]
     Active Substance: BUDESONIDE\FORMOTEROL FUMARATE DIHYDRATE
  6. OMEPRAZOLE. [Concomitant]
     Active Substance: OMEPRAZOLE
  7. BUPROPION. [Concomitant]
     Active Substance: BUPROPION

REACTIONS (13)
  - Headache [None]
  - Toothache [None]
  - Depression [None]
  - Nausea [None]
  - Stomatitis [None]
  - Burning sensation [None]
  - Myalgia [None]
  - Lung disorder [None]
  - Arthralgia [None]
  - Ageusia [None]
  - Hypertension [None]
  - Amnesia [None]
  - Alopecia [None]

NARRATIVE: CASE EVENT DATE: 20100103
